FAERS Safety Report 10779277 (Version 3)
Quarter: 2015Q3

REPORT INFORMATION
  Report Type: Spontaneous
  Country: US (occurrence: US)
  Receive Date: 20150210
  Receipt Date: 20150728
  Transmission Date: 20151125
  Serious: Yes (Other)
  Sender: FDA-Public Use
  Company Number: US-ASTRAZENECA-2015SE10406

PATIENT
  Age: 60 Year
  Sex: Female
  Weight: 74.8 kg

DRUGS (4)
  1. BYDUREON [Suspect]
     Active Substance: EXENATIDE
     Indication: TYPE 2 DIABETES MELLITUS
     Dosage: 2 MG, 4 COUNT VIAL, ONCE A WEEK
     Route: 058
     Dates: start: 2014, end: 2015
  2. METFORMIN [Concomitant]
     Active Substance: METFORMIN HYDROCHLORIDE
     Indication: TYPE 2 DIABETES MELLITUS
     Route: 048
  3. BYDUREON [Suspect]
     Active Substance: EXENATIDE
     Indication: TYPE 2 DIABETES MELLITUS
     Dosage: PEN, 2MG,  ONCE A WEEK
     Route: 058
     Dates: start: 2014, end: 2014
  4. BYDUREON [Suspect]
     Active Substance: EXENATIDE
     Indication: TYPE 2 DIABETES MELLITUS
     Dosage: VIAL, 2MG/KG,  ONCE A WEEK
     Route: 058
     Dates: start: 201402, end: 2014

REACTIONS (4)
  - Thyroid disorder [Unknown]
  - Product quality issue [Recovering/Resolving]
  - Carpal tunnel syndrome [Unknown]
  - Drug dose omission [Recovered/Resolved]

NARRATIVE: CASE EVENT DATE: 2014
